FAERS Safety Report 9861351 (Version 2)
Quarter: 2014Q1

REPORT INFORMATION
  Report Type: Spontaneous
  Country: GB (occurrence: GB)
  Receive Date: 20140203
  Receipt Date: 20140211
  Transmission Date: 20141002
  Serious: Yes (Hospitalization)
  Sender: FDA-Public Use
  Company Number: GB-JNJFOC-20140112755

PATIENT
  Age: 3 Year
  Sex: Male

DRUGS (1)
  1. CALPOL INFANT SUSPENSION [Suspect]
     Indication: ACCIDENTAL EXPOSURE TO PRODUCT
     Dosage: HALF THE BOTTLE
     Route: 048

REACTIONS (2)
  - Accidental exposure to product by child [Unknown]
  - Product container issue [Unknown]
